FAERS Safety Report 7117815-1 (Version None)
Quarter: 2010Q4

REPORT INFORMATION
  Report Type: 
  Country: None (occurrence: None)
  Receive Date: 20101123
  Receipt Date: 20101112
  Transmission Date: 20110411
  Serious: Yes (Hospitalization)
  Sender: FDA-Public Use
  Company Number: US-SHIRE-SPV1-2010-01980

PATIENT
  Sex: Female

DRUGS (2)
  1. VYVANSE [Suspect]
     Indication: PRODUCT USED FOR UNKNOWN INDICATION
     Dosage: 35 MG, 1X/DAY:QD
  2. VYVANSE [Suspect]
     Dosage: 70 MG, 1X/DAY:QD

REACTIONS (3)
  - AGGRESSION [None]
  - CHEST PAIN [None]
  - DYSPNOEA [None]
